FAERS Safety Report 14452207 (Version 3)
Quarter: 2018Q2

REPORT INFORMATION
  Report Type: Report from Study
  Country: US (occurrence: US)
  Receive Date: 20180129
  Receipt Date: 20180504
  Transmission Date: 20180711
  Serious: Yes (Hospitalization, Other)
  Sender: FDA-Public Use
  Company Number: US-GILEAD-2018-0318054

PATIENT
  Age: 48 Year
  Sex: Female

DRUGS (6)
  1. FLOLAN [Suspect]
     Active Substance: EPOPROSTENOL SODIUM
     Dosage: 20 DF, CO
     Route: 042
  2. FLOLAN [Suspect]
     Active Substance: EPOPROSTENOL SODIUM
     Indication: PULMONARY HYPERTENSION
     Dosage: 20 DF, CO
     Route: 042
     Dates: start: 20080924
  3. REVATIO [Concomitant]
     Active Substance: SILDENAFIL CITRATE
  4. AMBRISENTAN [Suspect]
     Active Substance: AMBRISENTAN
     Indication: PRODUCT USED FOR UNKNOWN INDICATION
     Dosage: 5 MG, QD
     Route: 065
     Dates: start: 20110726
  5. FLOLAN [Suspect]
     Active Substance: EPOPROSTENOL SODIUM
     Dosage: 20 NG/KG/MIN
     Route: 042
  6. WARFARIN [Concomitant]
     Active Substance: WARFARIN

REACTIONS (2)
  - Systemic lupus erythematosus [Unknown]
  - Pancreatitis acute [Unknown]
